FAERS Safety Report 5404402-6 (Version None)
Quarter: 2007Q3

REPORT INFORMATION
  Report Type: 
  Country: None (occurrence: None)
  Receive Date: 20070711
  Receipt Date: 20060706
  Transmission Date: 20080115
  Serious: Yes (Other)
  Sender: FDA-Public Use
  Company Number: 240916

PATIENT
  Age: 56 Year
  Sex: Female
  Weight: 57.6 kg

DRUGS (13)
  1. ACTIVELLA [Suspect]
     Indication: MENOPAUSAL SYMPTOMS
     Dosage: 1 TAB, ORAL
     Route: 048
     Dates: start: 20020916, end: 20030511
  2. PREMPRO [Suspect]
     Indication: MENOPAUSAL SYMPTOMS
     Dosage: 0.625 MG/2.5 MG
     Dates: start: 19970101, end: 20020801
  3. PREMARIN [Suspect]
     Indication: MENOPAUSAL SYMPTOMS
     Dosage: 0.625 MG
     Dates: start: 19960101, end: 19970101
  4. PROVERA [Suspect]
     Indication: MENOPAUSAL SYMPTOMS
     Dosage: 2.5 MG
     Dates: start: 19960101, end: 19970101
  5. PROGESTERONE [Concomitant]
  6. ANAPROX [Concomitant]
  7. AMITRIPTYLINE HCL [Concomitant]
  8. IMITREX [Concomitant]
  9. AMERGE [Concomitant]
  10. FOSAMAX [Concomitant]
  11. PROZAC [Concomitant]
  12. CELEBREX [Concomitant]
  13. LEVOTHYROXINE SODIUM [Concomitant]

REACTIONS (1)
  - BREAST CANCER IN SITU [None]
